FAERS Safety Report 6764982-5 (Version None)
Quarter: 2010Q2

REPORT INFORMATION
  Report Type: 
  Country: None (occurrence: None)
  Receive Date: 20100610
  Receipt Date: 20100528
  Transmission Date: 20101027
  Serious: Yes (Other)
  Sender: FDA-Public Use
  Company Number: PHHY2010US35895

PATIENT
  Sex: Female

DRUGS (2)
  1. RECLAST [Suspect]
     Dosage: UNK
     Dates: start: 20090701
  2. ULTRAM [Concomitant]
     Dosage: 50 MG

REACTIONS (4)
  - FEELING ABNORMAL [None]
  - GINGIVAL INFECTION [None]
  - GINGIVITIS [None]
  - TOOTH DISORDER [None]
